FAERS Safety Report 4683367-9 (Version None)
Quarter: 2005Q2

REPORT INFORMATION
  Report Type: 
  Country: None (occurrence: None)
  Receive Date: 20050606
  Receipt Date: 20050606
  Transmission Date: 20051028
  Serious: Yes (Hospitalization)
  Sender: FDA-Public Use
  Company Number: None

PATIENT
  Age: 71 Year
  Sex: Male
  Weight: 92.1 kg

DRUGS (6)
  1. TOPOTECAN [Suspect]
     Indication: MALIGNANT NEOPLASM OF ISLETS OF LANGERHANS
     Dosage: DAILY X 5 DAY IV INTRAVENOU
     Route: 042
     Dates: start: 20050418, end: 20050422
  2. COUMADIN [Concomitant]
  3. ATENOLOL [Concomitant]
  4. SPIRONOLACTONE [Concomitant]
  5. INSULIN [Concomitant]
  6. FOSINOPRIL SODIUM [Concomitant]

REACTIONS (5)
  - CATHETER RELATED INFECTION [None]
  - CORONARY ARTERY ATHEROSCLEROSIS [None]
  - DYSPNOEA EXERTIONAL [None]
  - HAEMOGLOBIN DECREASED [None]
  - STREPTOCOCCAL BACTERAEMIA [None]
